FAERS Safety Report 24454812 (Version 2)
Quarter: 2024Q4

REPORT INFORMATION
  Report Type: Report from Study
  Country: US (occurrence: US)
  Receive Date: 20241017
  Receipt Date: 20241018
  Transmission Date: 20250115
  Serious: No
  Sender: ROCHE
  Company Number: US-ROCHE-3474186

PATIENT
  Age: 68 Year
  Sex: Male

DRUGS (16)
  1. RITUXAN [Suspect]
     Active Substance: RITUXIMAB
     Indication: Immune system disorder
     Dosage: INFUSE 1000 MG INTRAVENOUSLY X2 DOSES SEPARATED BY 14 DAYS (ONCE IN 2 WEEKS), REPEAT EVERY 6 MONTHS
     Route: 042
  2. ELIQUIS [Concomitant]
     Active Substance: APIXABAN
     Dosage: ORAL TABLET 5 MG TWICE DAILY
  3. LIPITOR [Concomitant]
     Active Substance: ATORVASTATIN CALCIUM
     Dosage: TAKE 1 TABLET (40MG TOTAL) BY MOUTH DAILY
  4. BENZOYL PEROXIDE [Concomitant]
     Active Substance: BENZOYL PEROXIDE
     Dosage: APPLY 1 APPLICATION TOPICALLY EVERY OTHER DAY. WHEN SHOWERING TO SCALP
  5. ZEBETA [Concomitant]
     Active Substance: BISOPROLOL FUMARATE
     Dosage: TAKE 1 TABLET (10MG TOTAL) BY MOUTH 2 TIMES DAILY
  6. SYMBICORT [Concomitant]
     Active Substance: BUDESONIDE\FORMOTEROL FUMARATE DIHYDRATE
     Dosage: INHALE 2 PUFFS INTO THE LUNGS TWO TIMES DAILY
  7. CLEOCIN T [Concomitant]
     Active Substance: CLINDAMYCIN PHOSPHATE
     Dosage: APPLY 1 APPLICATION TOPICALLY DAILY. TO SCALP AFTER SHOWERING
  8. RESTASIS [Concomitant]
     Active Substance: CYCLOSPORINE
     Dosage: PLACE 1 DROP INTO BOTH EYES 2 TIMES DAILY
  9. NIZORAL [Concomitant]
     Active Substance: KETOCONAZOLE
     Dosage: APPLY 1 APPLICATION TOPICALLY TWICE A WEEK. LEAVE ON 5 MIN BEFORE WASHING OFF TO BEARD?AREA
  10. CHOLECALCIFEROL [Concomitant]
     Active Substance: CHOLECALCIFEROL
     Dosage: TAKE 1000 UNITS BY MOUTH 2 TIMES DAILY
  11. ELOCON [Concomitant]
     Active Substance: MOMETASONE FUROATE
     Dosage: APPLY TOPICALLY 2 TIMES DAILY. USE FOR 2-3 WEEKS TO HANDS WHEN FLARED, THEN TAPER
  12. DIOVAN [Concomitant]
     Active Substance: VALSARTAN
     Dosage: TAKE 2 TABLETS (160MG TOTAL) BY MOUTH DAILY
  13. ALBUTEROL SULFATE [Concomitant]
     Active Substance: ALBUTEROL SULFATE
  14. PERIACTIN [Concomitant]
     Active Substance: CYPROHEPTADINE HYDROCHLORIDE
     Dosage: TAKE 1 TABLET TWICE A DAY A NEEDED FOR ALLERGIES, USE SPARINGLY
  15. ATROVENT [Concomitant]
     Active Substance: IPRATROPIUM BROMIDE
     Dosage: USE 1 SPRAY IN EACH NOSTRILAS NEEDED
  16. PRILOSEC [Concomitant]
     Active Substance: OMEPRAZOLE MAGNESIUM
     Dosage: TAKE 2.5MG BY MOUTH DAILY

REACTIONS (2)
  - Off label use [Unknown]
  - No adverse event [Unknown]
